FAERS Safety Report 17074731 (Version 3)
Quarter: 2020Q1

REPORT INFORMATION
  Report Type: Report from Study
  Country: None (occurrence: CA)
  Receive Date: 20191126
  Receipt Date: 20200302
  Transmission Date: 20200409
  Serious: Yes (Hospitalization, Other)
  Sender: FDA-Public Use
  Company Number: CA-ABBVIE-19K-028-3013083-00

PATIENT
  Age: 71 Year
  Sex: Male

DRUGS (2)
  1. LUPRON DEPOT [Suspect]
     Active Substance: LEUPROLIDE ACETATE
     Route: 030
     Dates: start: 2019
  2. LUPRON DEPOT [Suspect]
     Active Substance: LEUPROLIDE ACETATE
     Indication: PROSTATE CANCER
     Route: 030
     Dates: start: 20190516, end: 2019

REACTIONS (9)
  - Rib fracture [Recovering/Resolving]
  - Head injury [Not Recovered/Not Resolved]
  - Pneumothorax [Unknown]
  - Coma [Unknown]
  - Accident [Unknown]
  - Confusional state [Recovered/Resolved]
  - Upper limb fracture [Recovering/Resolving]
  - Contusion [Unknown]
  - Memory impairment [Unknown]

NARRATIVE: CASE EVENT DATE: 2019
